FAERS Safety Report 7003033-4 (Version None)
Quarter: 2010Q3

REPORT INFORMATION
  Report Type: 
  Country: None (occurrence: None)
  Receive Date: 20100920
  Receipt Date: 20100527
  Transmission Date: 20110219
  Serious: Yes (Hospitalization, Other)
  Sender: FDA-Public Use
  Company Number: US-ASTRAZENECA-2005UW13236

PATIENT
  Age: 13 Year
  Sex: Female
  Weight: 106.6 kg

DRUGS (23)
  1. SEROQUEL [Suspect]
     Indication: BIPOLAR I DISORDER
     Dosage: 25 MG - 200 MG
     Route: 048
     Dates: start: 20030118, end: 20041009
  2. SEROQUEL [Suspect]
     Indication: AGITATION
     Dosage: 25 MG - 200 MG
     Route: 048
     Dates: start: 20030118, end: 20041009
  3. SEROQUEL [Suspect]
     Route: 048
     Dates: start: 20031001, end: 20041001
  4. SEROQUEL [Suspect]
     Route: 048
     Dates: start: 20031001, end: 20041001
  5. SEROQUEL [Suspect]
     Dosage: 200 MG HALF TABLET MORNING AND TWO AND HALF TABLET AT NIGHT
     Route: 048
     Dates: start: 20040408
  6. SEROQUEL [Suspect]
     Dosage: 200 MG HALF TABLET MORNING AND TWO AND HALF TABLET AT NIGHT
     Route: 048
     Dates: start: 20040408
  7. PROZAC [Concomitant]
     Indication: BIPOLAR DISORDER
  8. WELBUTRON [Concomitant]
     Indication: BIPOLAR DISORDER
  9. ABILIFY [Concomitant]
     Dates: start: 20060401, end: 20061101
  10. GEODON [Concomitant]
  11. LAMICTAL [Concomitant]
  12. RISPERDAL [Concomitant]
  13. ADDERALL 10 [Concomitant]
  14. TOPAMAX [Concomitant]
  15. TRAZODONE HCL [Concomitant]
  16. NOVOLOG [Concomitant]
  17. PROVIGIL [Concomitant]
  18. TRILEPTAL [Concomitant]
  19. PERCOCET [Concomitant]
  20. SINGULAIR [Concomitant]
  21. DEPAKOTE [Concomitant]
  22. ZYPREXA [Concomitant]
     Dosage: 2.5 MG TO 5 MG
     Dates: start: 20030204
  23. PREDNISONE [Concomitant]
     Dates: start: 20030531

REACTIONS (6)
  - DEPRESSION [None]
  - DIABETIC KETOACIDOSIS [None]
  - GLYCOSURIA [None]
  - HYPERGLYCAEMIA [None]
  - OBESITY [None]
  - TYPE 1 DIABETES MELLITUS [None]
